FAERS Safety Report 7507519-5 (Version None)
Quarter: 2011Q2

REPORT INFORMATION
  Report Type: 
  Country: None (occurrence: None)
  Receive Date: 20110526
  Receipt Date: 20101019
  Transmission Date: 20111010
  Serious: No
  Sender: FDA-Public Use
  Company Number: US-MYLANLABS-2010S1019437

PATIENT
  Age: 65 Year
  Sex: Female

DRUGS (6)
  1. CELEXA [Concomitant]
     Route: 048
  2. ZOLPIDEM TARTRATE [Suspect]
     Indication: INSOMNIA
     Route: 048
     Dates: start: 20100814, end: 20101001
  3. VITAMIN D [Concomitant]
     Route: 048
  4. ZOLPIDEM TARTRATE [Suspect]
     Route: 048
     Dates: start: 20101001, end: 20101017
  5. IMITREX [Concomitant]
     Indication: MIGRAINE
     Route: 048
  6. VITAMIN B [Concomitant]
     Route: 048

REACTIONS (1)
  - HYPERSENSITIVITY [None]
